FAERS Safety Report 7282377-5 (Version None)
Quarter: 2010Q4

REPORT INFORMATION
  Report Type: 
  Country: None (occurrence: None)
  Receive Date: 20101221
  Receipt Date: 20101013
  Transmission Date: 20110411
  Serious: Yes (Hospitalization)
  Sender: FDA-Public Use
  Company Number: WAES 1010USA01501

PATIENT
  Age: 63 Year
  Sex: Female

DRUGS (5)
  1. JANUVIA [Suspect]
     Indication: DIABETES MELLITUS
     Dosage: 100 MG/DAILY/PO
     Route: 048
     Dates: start: 20080801, end: 20100501
  2. ATACAND [Concomitant]
  3. BYSTOLIC [Concomitant]
  4. MAXZIDE [Concomitant]
  5. SYNTHROID [Concomitant]

REACTIONS (1)
  - PANCREATITIS [None]
